FAERS Safety Report 18425736 (Version 1)
Quarter: 2020Q4

REPORT INFORMATION
  Report Type: Spontaneous
  Country: US (occurrence: US)
  Receive Date: 20201023
  Receipt Date: 20201023
  Transmission Date: 20210114
  Serious: Yes (Other)
  Sender: FDA-Public Use
  Company Number: None

PATIENT
  Age: 3 Year
  Sex: 0

DRUGS (1)
  1. LEVOTHYROXINE 112 MCG [Suspect]
     Active Substance: LEVOTHYROXINE

REACTIONS (1)
  - Drug level changed [None]
